FAERS Safety Report 21609482 (Version 1)
Quarter: 2022Q4

REPORT INFORMATION
  Report Type: Report from Study
  Country: US (occurrence: US)
  Receive Date: 20221117
  Receipt Date: 20221117
  Transmission Date: 20230112
  Serious: No
  Sender: FDA-Public Use
  Company Number: US-HORIZON THERAPEUTICS-HZN-2022-007299

PATIENT

DRUGS (1)
  1. TEPEZZA [Suspect]
     Active Substance: TEPROTUMUMAB-TRBW
     Indication: Endocrine ophthalmopathy
     Dosage: FIRST INFUSION (INFUSED, TOPICAL SOLUTION FORM)
     Route: 042
     Dates: start: 20220831

REACTIONS (2)
  - Oropharyngeal pain [Unknown]
  - Gingival pain [Unknown]

NARRATIVE: CASE EVENT DATE: 20220101
